FAERS Safety Report 12840282 (Version 1)
Quarter: 2016Q4

REPORT INFORMATION
  Report Type: Spontaneous
  Country: US (occurrence: US)
  Receive Date: 20161012
  Receipt Date: 20161012
  Transmission Date: 20170207
  Serious: No
  Sender: FDA-Public Use
  Company Number: US-TEVA-699907USA

PATIENT
  Age: 56 Year
  Sex: Female

DRUGS (22)
  1. ATENOLOL. [Concomitant]
     Active Substance: ATENOLOL
  2. PREDNISONE. [Concomitant]
     Active Substance: PREDNISONE
  3. LEVOTHYROXIN [Concomitant]
     Active Substance: LEVOTHYROXINE
  4. HYDROCO/APAP [Concomitant]
     Active Substance: ACETAMINOPHEN\HYDROCODONE
     Dosage: 10-660MG
  5. GABAPENTIN. [Concomitant]
     Active Substance: GABAPENTIN
  6. BACLOFEN. [Concomitant]
     Active Substance: BACLOFEN
  7. ESTRADIOL. [Concomitant]
     Active Substance: ESTRADIOL
  8. ESTRADIOL. [Concomitant]
     Active Substance: ESTRADIOL
  9. MEDROXYPROGESTERONE ACETATE. [Concomitant]
     Active Substance: MEDROXYPROGESTERONE ACETATE
  10. LOCOID LIPO [Concomitant]
  11. VENLAFAXINE ER [Concomitant]
     Active Substance: VENLAFAXINE HYDROCHLORIDE
  12. EFFEXOR XR [Concomitant]
     Active Substance: VENLAFAXINE HYDROCHLORIDE
  13. SIMVASTATIN. [Concomitant]
     Active Substance: SIMVASTATIN
  14. ALPRAZOLAM. [Concomitant]
     Active Substance: ALPRAZOLAM
  15. PROVIGIL [Concomitant]
     Active Substance: MODAFINIL
  16. TRIAZOLAM. [Concomitant]
     Active Substance: TRIAZOLAM
  17. METHYLPRED PAK [Concomitant]
  18. CLINDAMYCIN. [Concomitant]
     Active Substance: CLINDAMYCIN
  19. FLAXSEED [Concomitant]
     Active Substance: FLAX SEED
  20. AMOXICILLIN. [Concomitant]
     Active Substance: AMOXICILLIN
  21. COPAXONE [Suspect]
     Active Substance: GLATIRAMER ACETATE
     Indication: MULTIPLE SCLEROSIS
     Dosage: 20 MILLIGRAM DAILY;
     Route: 058
     Dates: start: 2000
  22. CENTRUM SILVER [Concomitant]
     Active Substance: MINERALS\VITAMINS

REACTIONS (1)
  - Fatigue [Unknown]

NARRATIVE: CASE EVENT DATE: 201608
